FAERS Safety Report 23028361 (Version 1)
Quarter: 2023Q4

REPORT INFORMATION
  Report Type: Spontaneous
  Country: US (occurrence: None)
  Receive Date: 20231004
  Receipt Date: 20231004
  Transmission Date: 20240110
  Serious: Yes (Hospitalization)
  Sender: FDA-Public Use
  Company Number: None

PATIENT
  Age: 57 Year
  Sex: Female
  Weight: 110.25 kg

DRUGS (6)
  1. PREDNISONE [Suspect]
     Active Substance: PREDNISONE
     Indication: COVID-19
     Dosage: OTHER QUANTITY : 10 TABLET(S);?FREQUENCY : TWICE A DAY;?
     Route: 048
     Dates: start: 20230823, end: 20230829
  2. LISINOPRIL [Concomitant]
     Active Substance: LISINOPRIL
  3. FUROSEMIDE [Concomitant]
     Active Substance: FUROSEMIDE
  4. POTASSIUM [Concomitant]
     Active Substance: POTASSIUM
  5. VITAMIN D [Concomitant]
     Active Substance: VITAMIN D NOS
  6. Woman^s One A Day Vitamin [Concomitant]

REACTIONS (7)
  - Generalised oedema [None]
  - Weight increased [None]
  - Salt craving [None]
  - Dyspnoea [None]
  - Hypoaesthesia [None]
  - Abdominal pain upper [None]
  - Abdominal distension [None]

NARRATIVE: CASE EVENT DATE: 20230919
